FAERS Safety Report 6412559-3 (Version None)
Quarter: 2009Q4

REPORT INFORMATION
  Report Type: 
  Country: None (occurrence: None)
  Receive Date: 20091023
  Receipt Date: 20091013
  Transmission Date: 20100525
  Serious: Yes (Other)
  Sender: FDA-Public Use
  Company Number: US-BAYER-200936218NA

PATIENT
  Age: 49 Year
  Sex: Female

DRUGS (4)
  1. MAGNEVIST [Suspect]
     Indication: NUCLEAR MAGNETIC RESONANCE IMAGING
     Dates: start: 20061213, end: 20061213
  2. OMNISCAN [Suspect]
     Indication: NUCLEAR MAGNETIC RESONANCE IMAGING
     Dates: start: 20061213, end: 20061213
  3. OPTIMARK [Suspect]
     Indication: NUCLEAR MAGNETIC RESONANCE IMAGING
     Dates: start: 20061213, end: 20061213
  4. MULTIHANCE [Suspect]
     Indication: NUCLEAR MAGNETIC RESONANCE IMAGING
     Dates: start: 20061213, end: 20061213

REACTIONS (13)
  - DEFORMITY [None]
  - FIBROSIS [None]
  - GENERAL PHYSICAL HEALTH DETERIORATION [None]
  - JOINT STIFFNESS [None]
  - NEPHROGENIC SYSTEMIC FIBROSIS [None]
  - OEDEMA [None]
  - OEDEMA PERIPHERAL [None]
  - PAIN [None]
  - PAIN OF SKIN [None]
  - RASH MACULAR [None]
  - SCAR [None]
  - SKIN EXFOLIATION [None]
  - SKIN FIBROSIS [None]
